FAERS Safety Report 15044526 (Version 1)
Quarter: 2018Q2

REPORT INFORMATION
  Report Type: Spontaneous
  Country: US (occurrence: US)
  Receive Date: 20180531
  Receipt Date: 20180531
  Transmission Date: 20180711
  Serious: Yes (Hospitalization)
  Sender: FDA-Public Use
  Company Number: None

PATIENT
  Age: 93 Year
  Sex: Male
  Weight: 67.04 kg

DRUGS (2)
  1. TORSEMIDE. [Suspect]
     Active Substance: TORSEMIDE
     Indication: FLUID OVERLOAD
     Route: 048
     Dates: start: 20180227, end: 20180519
  2. CHLORTHALIDONE. [Suspect]
     Active Substance: CHLORTHALIDONE
     Indication: FLUID OVERLOAD
     Route: 048
     Dates: start: 20180216, end: 20180519

REACTIONS (3)
  - Hyponatraemia [None]
  - Confusional state [None]
  - Hypophagia [None]

NARRATIVE: CASE EVENT DATE: 20180519
